FAERS Safety Report 6208728-8 (Version None)
Quarter: 2009Q2

REPORT INFORMATION
  Report Type: 
  Country: None (occurrence: None)
  Receive Date: 20090529
  Receipt Date: 20090526
  Transmission Date: 20091009
  Serious: Yes (Other)
  Sender: FDA-Public Use
  Company Number: US-BRISTOL-MYERS SQUIBB COMPANY-14617955

PATIENT
  Age: 55 Year
  Sex: Male

DRUGS (7)
  1. BARACLUDE [Suspect]
     Indication: HEPATITIS B
     Route: 048
     Dates: start: 20060828, end: 20090421
  2. HEPSERA [Suspect]
     Indication: HEPATITIS B
     Dates: start: 20040923, end: 20090421
  3. ADEFOVIR DIPIVOXIL KIT [Concomitant]
     Dates: start: 20040923, end: 20090421
  4. NADOLOL [Concomitant]
  5. NEURONTIN [Concomitant]
  6. DILAUDID [Concomitant]
  7. POTASSIUM PHOSPHATES [Concomitant]

REACTIONS (3)
  - NEPHROLITHIASIS [None]
  - PANCYTOPENIA [None]
  - RENAL FAILURE [None]
